FAERS Safety Report 5892597-X (Version None)
Quarter: 2008Q3

REPORT INFORMATION
  Report Type: 
  Country: None (occurrence: None)
  Receive Date: 20080919
  Receipt Date: 20080919
  Transmission Date: 20090109
  Serious: Yes (Other)
  Sender: FDA-Public Use
  Company Number: None

PATIENT
  Age: 29 Year
  Sex: Female
  Weight: 57.6068 kg

DRUGS (3)
  1. MIRENA [Suspect]
     Indication: CONTRACEPTION
     Dosage: INTRACAVERNOUS
     Route: 017
     Dates: start: 20070401, end: 20070915
  2. MIRENA [Suspect]
     Indication: PREMENSTRUAL SYNDROME
     Dosage: INTRACAVERNOUS
     Route: 017
     Dates: start: 20070401, end: 20070915
  3. LEVONORGESTREL [Suspect]

REACTIONS (4)
  - ALOPECIA [None]
  - BLOOD OESTROGEN DECREASED [None]
  - MUSCLE SPASMS [None]
  - TENDERNESS [None]
